FAERS Safety Report 23803236 (Version 1)
Quarter: 2024Q2

REPORT INFORMATION
  Report Type: Spontaneous
  Country: ZA (occurrence: ZA)
  Receive Date: 20240501
  Receipt Date: 20240501
  Transmission Date: 20240716
  Serious: Yes (Other)
  Sender: FDA-Public Use
  Company Number: ZA-PFIZER INC-PV202400055035

PATIENT
  Sex: Female

DRUGS (1)
  1. XELJANZ [Suspect]
     Active Substance: TOFACITINIB CITRATE
     Dosage: 5 MG, 2X/DAY, (BD)

REACTIONS (11)
  - Urethral obstruction [Unknown]
  - Urinary tract infection [Not Recovered/Not Resolved]
  - Infected skin ulcer [Unknown]
  - Skin ulcer [Unknown]
  - Wound secretion [Unknown]
  - Diarrhoea [Not Recovered/Not Resolved]
  - Peripheral swelling [Unknown]
  - Erythema [Unknown]
  - Pain in extremity [Unknown]
  - Asthenia [Unknown]
  - Dysstasia [Unknown]
